FAERS Safety Report 8265842-3 (Version None)
Quarter: 2012Q2

REPORT INFORMATION
  Report Type: 
  Country: None (occurrence: None)
  Receive Date: 20120406
  Receipt Date: 20120328
  Transmission Date: 20120825
  Serious: Yes (Other)
  Sender: FDA-Public Use
  Company Number: JP-CELGENEUS-087-21880-12021789

PATIENT
  Sex: Female
  Weight: 51 kg

DRUGS (13)
  1. ACTONEL [Concomitant]
     Dosage: 17.5 MILLIGRAM
     Route: 048
     Dates: start: 20111017
  2. LOSARTAN POTASSIUM [Concomitant]
     Dosage: 100 MILLIGRAM
     Route: 048
     Dates: start: 20111017
  3. PROMACTA [Concomitant]
     Dosage: 2 TABLET
     Route: 048
     Dates: start: 20111017
  4. CEFAZOLIN SODIUM [Concomitant]
     Indication: PROPHYLAXIS
     Dosage: 3 TABLET
     Route: 048
     Dates: start: 20111017
  5. MUCOSTA [Concomitant]
     Indication: PROPHYLAXIS
     Dosage: 100 MILLIGRAM
     Route: 048
     Dates: start: 20111017
  6. LEVOTHYROXINE SODIUM [Concomitant]
     Dosage: 100 MICROGRAM
     Route: 048
     Dates: start: 20111017
  7. ALDACTONE [Concomitant]
     Indication: OEDEMA
     Dosage: 100 MILLIGRAM
     Route: 048
     Dates: start: 20111017
  8. ASPIRIN [Concomitant]
     Indication: PROPHYLAXIS
     Dosage: 100 MILLIGRAM
     Route: 048
     Dates: start: 20120215, end: 20120215
  9. VALTREX [Concomitant]
     Indication: PROPHYLAXIS
     Dosage: 1 GRAM
     Route: 048
     Dates: start: 20111017
  10. REVLIMID [Suspect]
     Indication: MULTIPLE MYELOMA
     Dosage: 15 MILLIGRAM
     Route: 048
     Dates: start: 20120215, end: 20120215
  11. ALLOPURINOL [Concomitant]
     Dosage: 3 TABLET
     Route: 048
     Dates: start: 20111017
  12. DEXAMETHASONE ACETATE [Suspect]
     Indication: MULTIPLE MYELOMA
     Dosage: 20 MILLIGRAM
     Route: 048
     Dates: start: 20120215, end: 20120215
  13. LASIX [Concomitant]
     Indication: OEDEMA
     Dosage: 40 MILLIGRAM
     Route: 048
     Dates: start: 20111017

REACTIONS (1)
  - BRADYCARDIA [None]
